FAERS Safety Report 8956328 (Version 2)
Quarter: 2013Q1

REPORT INFORMATION
  Report Type: Spontaneous
  Country: US (occurrence: US)
  Receive Date: 20121210
  Receipt Date: 20130205
  Transmission Date: 20140127
  Serious: Yes (Hospitalization)
  Sender: FDA-Public Use
  Company Number: US-ELI_LILLY_AND_COMPANY-US201210004613

PATIENT
  Sex: Female
  Weight: 71.2 kg

DRUGS (11)
  1. FORTEO [Suspect]
     Indication: OSTEOPOROSIS
     Dosage: 20 UG, QD
     Route: 058
  2. FORTEO [Suspect]
     Dosage: 20 UG, QD
  3. FORTEO [Suspect]
     Dosage: 20 UG, QD
  4. AMLODIPINE [Concomitant]
  5. AVAPRO [Concomitant]
  6. LEVOTHYROXINE [Concomitant]
  7. OMEPRAZOLE [Concomitant]
  8. KEPRA [Concomitant]
     Indication: CONVULSION
     Dosage: UNK
  9. LAMICTAL [Concomitant]
     Indication: CONVULSION
  10. VITAMIN D [Concomitant]
     Dosage: UNK, MONTHLY (1/M)
  11. BABY ASPIRIN [Concomitant]
     Dosage: UNK, QOD

REACTIONS (3)
  - Dehydration [Recovered/Resolved]
  - Hypersensitivity [Recovered/Resolved]
  - Feeling abnormal [Recovered/Resolved]
